FAERS Safety Report 7553988-4 (Version None)
Quarter: 2011Q2

REPORT INFORMATION
  Report Type: 
  Country: None (occurrence: None)
  Receive Date: 20110617
  Receipt Date: 20110607
  Transmission Date: 20111010
  Serious: Yes (Other)
  Sender: FDA-Public Use
  Company Number: US-US-EMD SERONO, INC.-7049110

PATIENT
  Sex: Female
  Weight: 109 kg

DRUGS (2)
  1. REBIF [Suspect]
     Indication: MULTIPLE SCLEROSIS
     Route: 058
     Dates: start: 20100310
  2. IBUPROFEN [Concomitant]
     Indication: PREMEDICATION

REACTIONS (4)
  - CERVICITIS TRICHOMONAL [None]
  - HUMAN PAPILLOMA VIRUS TEST POSITIVE [None]
  - CERVICAL DYSPLASIA [None]
  - INJECTION SITE SWELLING [None]
